FAERS Safety Report 6414250-6 (Version None)
Quarter: 2009Q4

REPORT INFORMATION
  Report Type: 
  Country: None (occurrence: None)
  Receive Date: 20091026
  Receipt Date: 20091015
  Transmission Date: 20100525
  Serious: Yes (Hospitalization)
  Sender: FDA-Public Use
  Company Number: US-JNJFOC-20091001390

PATIENT
  Sex: Female
  Weight: 34.6 kg

DRUGS (8)
  1. INFLIXIMAB [Suspect]
     Indication: CROHN'S DISEASE
     Route: 042
  2. INFLUENZA VACCINE [Concomitant]
     Indication: PROPHYLAXIS
  3. PANTOPRAZOLE SODIUM [Concomitant]
  4. AMITRIPTYLINE [Concomitant]
  5. HUMIRA [Concomitant]
     Route: 030
  6. PREVACID [Concomitant]
  7. MIRALAX [Concomitant]
  8. BENADRYL [Concomitant]

REACTIONS (3)
  - ANAPHYLACTIC REACTION [None]
  - CROHN'S DISEASE [None]
  - GASTROENTERITIS VIRAL [None]
